FAERS Safety Report 7841070-8 (Version None)
Quarter: 2011Q4

REPORT INFORMATION
  Report Type: 
  Country: None (occurrence: None)
  Receive Date: 20111025
  Receipt Date: 20110215
  Transmission Date: 20120403
  Serious: No
  Sender: FDA-Public Use
  Company Number: US-BAYER-2011-015369

PATIENT
  Age: 59 Year
  Sex: Male

DRUGS (4)
  1. OMEPRAZOLE [Concomitant]
     Dosage: UNK
  2. NEXAVAR [Suspect]
     Dosage: 200 MG, BID
     Route: 048
  3. OXYCODONE HCL [Concomitant]
     Dosage: UNK
  4. ONDANSETRON [Concomitant]

REACTIONS (4)
  - DIARRHOEA [None]
  - CONTUSION [None]
  - VOMITING [None]
  - NAUSEA [None]
